FAERS Safety Report 9304247 (Version 2)
Quarter: 2013Q2

REPORT INFORMATION
  Report Type: Other
  Country: IT (occurrence: IT)
  Receive Date: 20130522
  Receipt Date: 20130528
  Transmission Date: 20140414
  Serious: Yes (Life-Threatening)
  Sender: FDA-Public Use
  Company Number: IT-WATSON-2013-08820

PATIENT
  Age: 80 Year
  Sex: Female

DRUGS (5)
  1. CITALOPRAM HYDROBROMIDE (UNKNOWN) [Suspect]
     Indication: PRODUCT USED FOR UNKNOWN INDICATION
     Dosage: DAILY DOSE UNKNOWN, OVERDOSE WITH 320 MG
     Route: 048
  2. CARDIRENE [Concomitant]
     Indication: CARDIOMYOPATHY
     Dosage: UNK
     Route: 065
     Dates: start: 20120101, end: 20130412
  3. NITRODERM [Concomitant]
     Indication: CARDIOMYOPATHY
     Dosage: UNK
     Route: 065
     Dates: start: 20120101, end: 20130412
  4. BISOPROLOL [Concomitant]
     Indication: HYPERTENSION
     Dosage: UNK
     Route: 065
     Dates: start: 20120101, end: 20130412
  5. CITALOPRAM [Concomitant]
     Indication: ANXIETY
     Dosage: UNK
     Route: 065
     Dates: start: 20120101, end: 20130411

REACTIONS (4)
  - Agitation [Recovering/Resolving]
  - Disorientation [Recovering/Resolving]
  - Medication error [Recovering/Resolving]
  - Overdose [Recovering/Resolving]
